FAERS Safety Report 11612687 (Version 1)
Quarter: 2015Q4

REPORT INFORMATION
  Report Type: Spontaneous
  Country: CN (occurrence: CN)
  Receive Date: 20151008
  Receipt Date: 20151008
  Transmission Date: 20160304
  Serious: Yes (Other)
  Sender: FDA-Public Use
  Company Number: CN-ELI_LILLY_AND_COMPANY-CN201509009547

PATIENT
  Age: 5 Month
  Weight: 8 kg

DRUGS (3)
  1. CECLOR [Suspect]
     Active Substance: CEFACLOR
     Indication: NASOPHARYNGITIS
     Dosage: 0.5 DF, TID
     Route: 048
     Dates: start: 20150924
  2. DEXTROMETHORPHAN HBR W/PSEUDOEPHEDRINE HCL [Concomitant]
  3. VITA-D [Concomitant]

REACTIONS (2)
  - Diarrhoea [Unknown]
  - Haematochezia [Unknown]
